FAERS Safety Report 8711764 (Version 2)
Quarter: 2013Q4

REPORT INFORMATION
  Report Type: Spontaneous
  Country: US (occurrence: US)
  Receive Date: 20120807
  Receipt Date: 20131105
  Transmission Date: 20140711
  Serious: Yes (Hospitalization)
  Sender: FDA-Public Use
  Company Number: US-BAYER-2012-078575

PATIENT
  Age: 34 Year
  Sex: Female

DRUGS (6)
  1. YASMIN [Suspect]
  2. YAZ [Suspect]
  3. DEPAKOTE [Concomitant]
     Dosage: 1000 MG, HS
     Dates: start: 20071003
  4. CYMBALTA [Concomitant]
     Dosage: 60 DAILY
     Dates: start: 20071003
  5. ATIVAN [Concomitant]
     Dosage: 1 MG, TID
     Dates: start: 20071003
  6. SOMA [Concomitant]

REACTIONS (1)
  - Deep vein thrombosis [Recovered/Resolved]
